FAERS Safety Report 4478116-3 (Version None)
Quarter: 2004Q4

REPORT INFORMATION
  Report Type: 
  Country: None (occurrence: None)
  Receive Date: 20041018
  Receipt Date: 20041018
  Transmission Date: 20050328
  Serious: Yes (Other)
  Sender: FDA-Public Use
  Company Number: None

PATIENT
  Age: 39 Year
  Sex: Male
  Weight: 90.7194 kg

DRUGS (1)
  1. ZOLOFT  50 MGS  PFIZER / WALGREENS [Suspect]
     Indication: ANXIETY
     Dosage: 50 MGS 1X DAILY ORAL
     Route: 048
     Dates: start: 19990901, end: 20041015

REACTIONS (4)
  - DEPRESSION [None]
  - DIZZINESS [None]
  - EMOTIONAL DISTRESS [None]
  - NAUSEA [None]
